FAERS Safety Report 17139536 (Version 1)
Quarter: 2019Q4

REPORT INFORMATION
  Report Type: Spontaneous
  Country: US (occurrence: US)
  Receive Date: 20191210
  Receipt Date: 20191210
  Transmission Date: 20200122
  Serious: Yes (Death)
  Sender: FDA-Public Use
  Company Number: None

PATIENT
  Age: 61 Year
  Sex: Female

DRUGS (15)
  1. ONDANSETRON [Concomitant]
     Active Substance: ONDANSETRON
  2. BENICAR [Concomitant]
     Active Substance: OLMESARTAN MEDOXOMIL
  3. EMLA EXTERNAL CREAM [Concomitant]
  4. COREG [Concomitant]
     Active Substance: CARVEDILOL
  5. PREDNISONE. [Concomitant]
     Active Substance: PREDNISONE
  6. KETOROLAC [Concomitant]
     Active Substance: KETOROLAC TROMETHAMINE
  7. TRAMADOL. [Concomitant]
     Active Substance: TRAMADOL
  8. RIZATRIPTAN. [Concomitant]
     Active Substance: RIZATRIPTAN
  9. DICYCLOMINE [Concomitant]
     Active Substance: DICYCLOMINE HYDROCHLORIDE
  10. CROMOLYN [Concomitant]
     Active Substance: CROMOLYN
  11. LIDOCAINE. [Concomitant]
     Active Substance: LIDOCAINE
  12. GABAPENTIN. [Concomitant]
     Active Substance: GABAPENTIN
  13. IBRANCE [Suspect]
     Active Substance: PALBOCICLIB
     Indication: BREAST CANCER FEMALE
     Route: 048
  14. POTASSIUM CHLORIDE. [Concomitant]
     Active Substance: POTASSIUM CHLORIDE
  15. SOMA [Concomitant]
     Active Substance: CARISOPRODOL

REACTIONS (1)
  - Death [None]

NARRATIVE: CASE EVENT DATE: 20191130
